FAERS Safety Report 24561015 (Version 1)
Quarter: 2024Q4

REPORT INFORMATION
  Report Type: Spontaneous
  Country: US (occurrence: US)
  Receive Date: 20241029
  Receipt Date: 20241029
  Transmission Date: 20250115
  Serious: Yes (Other)
  Sender: EMD SERONO INC
  Company Number: US-Merck Healthcare KGaA-2024056568

PATIENT
  Age: 53 Year
  Sex: Male

DRUGS (2)
  1. MAVENCLAD [Suspect]
     Active Substance: CLADRIBINE
     Indication: Multiple sclerosis
     Dosage: MAVENCLAD YEAR ONE THERAPY
     Dates: end: 202308
  2. MAVENCLAD [Suspect]
     Active Substance: CLADRIBINE
     Dosage: MAVENCLAD YEAR 2 THERAPY
     Dates: start: 202408, end: 20240907

REACTIONS (1)
  - Optic neuritis [Recovering/Resolving]

NARRATIVE: CASE EVENT DATE: 20240918
